FAERS Safety Report 24127410 (Version 1)
Quarter: 2024Q3

REPORT INFORMATION
  Report Type: Spontaneous
  Country: US (occurrence: US)
  Receive Date: 20240723
  Receipt Date: 20240723
  Transmission Date: 20241016
  Serious: No
  Sender: SANDOZ
  Company Number: US-SANDOZ-SDZ2024US067066

PATIENT
  Sex: Female

DRUGS (1)
  1. BRIMONIDINE TARTRATE [Suspect]
     Active Substance: BRIMONIDINE TARTRATE
     Indication: Product used for unknown indication
     Dosage: UNK UNK, BID, FOR A DAY AND A HALF(0.2% 10ML LDP)
     Route: 065
     Dates: start: 20240717

REACTIONS (2)
  - Headache [Unknown]
  - Dry mouth [Unknown]
